FAERS Safety Report 25707538 (Version 3)
Quarter: 2025Q4

REPORT INFORMATION
  Report Type: Spontaneous
  Country: DO (occurrence: DO)
  Receive Date: 20250820
  Receipt Date: 20251001
  Transmission Date: 20260117
  Serious: No
  Sender: PFIZER
  Company Number: DO-PFIZER INC-PV202500095817

PATIENT
  Age: 8 Year
  Sex: Female

DRUGS (1)
  1. GENOTROPIN [Suspect]
     Active Substance: SOMATROPIN
     Dosage: 2.0 MG, DAILY (EVERY NIGHT)

REACTIONS (1)
  - Device physical property issue [Unknown]
